FAERS Safety Report 4629856-4 (Version None)
Quarter: 2005Q2

REPORT INFORMATION
  Report Type: 
  Country: None (occurrence: None)
  Receive Date: 20050407
  Receipt Date: 20050325
  Transmission Date: 20051028
  Serious: Yes (Other)
  Sender: FDA-Public Use
  Company Number: 200510154BYL

PATIENT
  Age: 61 Year
  Sex: Male

DRUGS (6)
  1. ASPIRIN [Suspect]
     Dosage: 100 MG, QD, ORAL
     Route: 048
  2. SLONNON [Concomitant]
  3. RADICUT [Concomitant]
  4. GASTER [Concomitant]
  5. WARFARIN SODIUM [Concomitant]
  6. LIPITOR [Concomitant]

REACTIONS (2)
  - LIVER DISORDER [None]
  - WHITE BLOOD CELL COUNT INCREASED [None]
